FAERS Safety Report 9438364 (Version 1)
Quarter: 2013Q3

REPORT INFORMATION
  Report Type: Spontaneous
  Country: US (occurrence: US)
  Receive Date: 20130802
  Receipt Date: 20130802
  Transmission Date: 20140515
  Serious: No
  Sender: FDA-Public Use
  Company Number: US-BRISTOL-MYERS SQUIBB COMPANY-17038225

PATIENT
  Age: 88 Year
  Sex: Female

DRUGS (5)
  1. COUMADIN [Suspect]
     Indication: ATRIAL FIBRILLATION
     Dosage: EXCEPT MONDAYS?5MG EVERY MONDAY
     Route: 048
     Dates: start: 20120914
  2. ACCUPRIL [Concomitant]
     Route: 048
  3. DIGOXIN [Concomitant]
     Dosage: 1DF=0.125 UNITS NOT SPECIFIED
     Route: 048
  4. METOPROLOL [Concomitant]
  5. LISINOPRIL [Concomitant]

REACTIONS (2)
  - Arthralgia [Unknown]
  - International normalised ratio decreased [Unknown]
